FAERS Safety Report 8092332-3 (Version None)
Quarter: 2012Q1

REPORT INFORMATION
  Report Type: 
  Country: None (occurrence: None)
  Receive Date: 20120128
  Receipt Date: 20110824
  Transmission Date: 20120608
  Serious: No
  Sender: FDA-Public Use
  Company Number: US-ABBOTT-11P-163-0849040-00

PATIENT
  Sex: Female
  Weight: 104.42 kg

DRUGS (8)
  1. HUMIRA [Suspect]
     Indication: PSORIATIC ARTHROPATHY
     Dates: start: 20070101, end: 20090101
  2. HUMIRA [Suspect]
     Dosage: MISSED DOSE
     Dates: start: 20110701
  3. FOLIC ACID [Concomitant]
     Indication: VITAMIN SUPPLEMENTATION
  4. HUMIRA [Suspect]
  5. METHOTREXATE [Concomitant]
     Route: 048
  6. HUMIRA [Suspect]
     Dates: start: 20110201
  7. METHOTREXATE [Concomitant]
     Indication: PSORIATIC ARTHROPATHY
     Dates: start: 20110801
  8. INDOMETHACIN [Concomitant]
     Indication: PSORIATIC ARTHROPATHY

REACTIONS (3)
  - INCORRECT DRUG ADMINISTRATION DURATION [None]
  - DYSKINESIA [None]
  - ARTHRALGIA [None]
